FAERS Safety Report 7113482-1 (Version None)
Quarter: 2010Q4

REPORT INFORMATION
  Report Type: 
  Country: None (occurrence: None)
  Receive Date: 20101119
  Receipt Date: 20101104
  Transmission Date: 20110411
  Serious: Yes (Hospitalization)
  Sender: FDA-Public Use
  Company Number: FR-ROCHE-420621

PATIENT
  Sex: Female
  Weight: 54 kg

DRUGS (8)
  1. TRASTUZUMAB [Suspect]
     Indication: BREAST CANCER METASTATIC
     Dosage: TOTAL DOSE = 216 MG TAKEN WEEKLY THROUGHOUT EACH THREE WEEK CYCLE
     Route: 042
     Dates: start: 20050711, end: 20050711
  2. CAPECITABINE [Suspect]
     Indication: BREAST CANCER METASTATIC
     Dosage: TOTAL DOSE RECEIVED = 3000 MG TAKEN ON DAYS ONE TO FOURTEEN OF EACH THREE WEEK CYCLE
     Route: 048
     Dates: start: 20050711, end: 20050714
  3. CAPECITABINE [Suspect]
     Dosage: PATIENT RECEIVED THREE INTAKES
     Route: 048
     Dates: start: 20050802, end: 20050803
  4. VINORELBINE [Suspect]
     Indication: BREAST CANCER METASTATIC
     Dosage: 60MG/M2 ON DAY 1 AND DAY 8 FOR CYCLE ONE AND THEN 80MG/M2 ON DAY 1 AND DAY 8 FOR SUBSEQUENT CYCLES
     Route: 048
     Dates: start: 20050711, end: 20050801
  5. ZOLPIDEM [Concomitant]
     Indication: INSOMNIA
     Route: 048
  6. BROMAZEPAM [Concomitant]
     Indication: ANXIETY
     Route: 048
  7. TRAMADOL HYDROCHLORIDE [Concomitant]
     Indication: BONE PAIN
     Dosage: TAKEN AS REQUIRED
     Route: 048
  8. ZOLEDRONIC ACID [Concomitant]
     Route: 042
     Dates: start: 20050615, end: 20050801

REACTIONS (2)
  - LEFT VENTRICULAR FAILURE [None]
  - MYOCARDITIS [None]
